FAERS Safety Report 23336617 (Version 1)
Quarter: 2023Q4

REPORT INFORMATION
  Report Type: Spontaneous
  Country: FR (occurrence: FR)
  Receive Date: 20231226
  Receipt Date: 20231226
  Transmission Date: 20240110
  Serious: Yes (Hospitalization, Other)
  Sender: FDA-Public Use
  Company Number: None

PATIENT

DRUGS (3)
  1. FLUTICASONE FUROATE [Suspect]
     Active Substance: FLUTICASONE FUROATE
     Indication: Chronic sinusitis
     Dosage: 2 DF, QD
     Route: 045
     Dates: start: 20231108, end: 20231204
  2. AUGMENTIN [Suspect]
     Active Substance: AMOXICILLIN\CLAVULANATE POTASSIUM
     Indication: Acute sinusitis
     Dosage: 3 G, QD
     Route: 048
     Dates: start: 20231108, end: 20231115
  3. PREDNISOLONE [Suspect]
     Active Substance: PREDNISOLONE
     Indication: Acute sinusitis
     Dosage: 100 MG, QD
     Route: 048
     Dates: start: 20231108, end: 20231115

REACTIONS (2)
  - Haemolytic anaemia [Not Recovered/Not Resolved]
  - Agranulocytosis [Not Recovered/Not Resolved]

NARRATIVE: CASE EVENT DATE: 20231205
